FAERS Safety Report 21800641 (Version 1)
Quarter: 2022Q4

REPORT INFORMATION
  Report Type: Spontaneous
  Country: US (occurrence: None)
  Receive Date: 20221229
  Receipt Date: 20221229
  Transmission Date: 20230112
  Serious: Yes (Other)
  Sender: FDA-Public Use
  Company Number: None

PATIENT
  Age: 48 Year
  Sex: Male
  Weight: 105.75 kg

DRUGS (12)
  1. OZEMPIC [Suspect]
     Active Substance: SEMAGLUTIDE
     Indication: Type 2 diabetes mellitus
     Dosage: OTHER QUANTITY : 1 INJECTION(S);?OTHER FREQUENCY : WEEKLY;?
     Route: 058
     Dates: start: 20221113, end: 20221225
  2. VASCEPA [Concomitant]
     Active Substance: ICOSAPENT ETHYL
  3. XIGDUO XR [Concomitant]
     Active Substance: DAPAGLIFLOZIN PROPANEDIOL\METFORMIN HYDROCHLORIDE
  4. LORATADINE D [Concomitant]
     Active Substance: LORATADINE\PSEUDOEPHEDRINE SULFATE
  5. ONDANSETRON [Concomitant]
     Active Substance: ONDANSETRON
  6. LANTUS [Concomitant]
     Active Substance: INSULIN GLARGINE
  7. ATORVASTATIN [Concomitant]
     Active Substance: ATORVASTATIN
  8. ALLOPURINOL [Concomitant]
     Active Substance: ALLOPURINOL
  9. LISINOPRIL [Concomitant]
     Active Substance: LISINOPRIL
  10. EZETIMIBE [Concomitant]
     Active Substance: EZETIMIBE
  11. OMEPRAZOLE [Concomitant]
     Active Substance: OMEPRAZOLE
  12. MULTI-VITAMIN [Concomitant]
     Active Substance: .ALPHA.-TOCOPHEROL ACETATE, DL-\ASCORBIC ACID\CYANOCOBALAMIN\FLUORIDE ION\FOLIC ACID\NIACIN\PYRIDOXI

REACTIONS (8)
  - Constipation [None]
  - Rectal haemorrhage [None]
  - Diverticulitis [None]
  - Dizziness [None]
  - Muscle strain [None]
  - Spinal disorder [None]
  - Hypoaesthesia [None]
  - Hypoaesthesia [None]

NARRATIVE: CASE EVENT DATE: 20221228
